FAERS Safety Report 17193529 (Version 5)
Quarter: 2021Q2

REPORT INFORMATION
  Report Type: Report from Study
  Country: JP (occurrence: JP)
  Receive Date: 20191223
  Receipt Date: 20210624
  Transmission Date: 20210716
  Serious: Yes (Death, Hospitalization, Other)
  Sender: FDA-Public Use
  Company Number: JP-GILEAD-2019-0443349

PATIENT
  Age: 42 Year
  Sex: Male
  Weight: 66 kg

DRUGS (17)
  1. EMTRICITABINE/TENOFOVIR ALAFENAMIDE [Suspect]
     Active Substance: EMTRICITABINE\TENOFOVIR
     Indication: HIV INFECTION
     Dosage: UNK
     Route: 048
  2. L CARTIN [Concomitant]
     Active Substance: LEVOCARNITINE HYDROCHLORIDE
     Indication: DISEASE COMPLICATION
     Dosage: UNK
     Route: 048
  3. SPIRONOLACTONE. [Concomitant]
     Active Substance: SPIRONOLACTONE
     Indication: DISEASE COMPLICATION
     Dosage: UNK
     Route: 048
  4. E KEPPRA [Concomitant]
     Active Substance: LEVETIRACETAM
     Indication: DISEASE COMPLICATION
     Dosage: UNK
     Route: 048
  5. PIARLE [Concomitant]
     Active Substance: LACTULOSE
     Indication: DISEASE COMPLICATION
     Dosage: UNK
     Route: 048
  6. TAKECAB [Concomitant]
     Active Substance: VONOPRAZAN FUMARATE
     Indication: DISEASE COMPLICATION
     Dosage: UNK
     Route: 048
  7. URSODEOXYCHOLIC ACID [Concomitant]
     Active Substance: URSODIOL
     Indication: HEPATITIS C
     Dosage: UNK
     Route: 048
  8. SOFOSBUVIR W/VELPATASVIR [Suspect]
     Active Substance: SOFOSBUVIR\VELPATASVIR
     Indication: HEPATITIS C
     Dosage: UNK
     Route: 065
     Dates: start: 2020, end: 2020
  9. ISENTRESS [Concomitant]
     Active Substance: RALTEGRAVIR POTASSIUM
     Indication: DISEASE COMPLICATION
     Dosage: UNK
     Route: 048
  10. HEPAACT [Concomitant]
     Indication: DISEASE COMPLICATION
     Dosage: UNK
     Route: 048
  11. SOFOSBUVIR W/VELPATASVIR [Suspect]
     Active Substance: SOFOSBUVIR\VELPATASVIR
     Indication: HEPATIC CIRRHOSIS
     Dosage: 1 DOSAGE FORM, QD
     Route: 048
     Dates: start: 20190725, end: 20191017
  12. HEMLIBRA [Concomitant]
     Active Substance: EMICIZUMAB-KXWH
     Indication: DISEASE COMPLICATION
     Dosage: UNK
     Route: 042
  13. RIFXIMA [Concomitant]
     Active Substance: RIFAXIMIN
     Indication: DISEASE COMPLICATION
     Dosage: UNK
     Route: 048
  14. SOFOSBUVIR W/VELPATASVIR [Suspect]
     Active Substance: SOFOSBUVIR\VELPATASVIR
     Dosage: 1 DOSAGE FORM
     Route: 048
     Dates: start: 202102, end: 20210419
  15. ADVATE [Concomitant]
     Active Substance: ANTIHEMOPHILIC FACTOR, HUMAN RECOMBINANT
     Indication: DISEASE COMPLICATION
     Dosage: UNK
     Route: 042
  16. GLYCYRON [DL?METHIONINE;GLYCINE;GLYCYRRHIZIC ACID, AMMONIUM SALT] [Concomitant]
     Active Substance: AMMONIUM GLYCYRRHIZATE\GLYCINE\RACEMETHIONINE
     Indication: DISEASE COMPLICATION
     Dosage: UNK
     Route: 048
  17. POLAPREZINC [Concomitant]
     Active Substance: POLAPREZINC
     Dosage: UNK
     Route: 048

REACTIONS (5)
  - Drug ineffective [Unknown]
  - Intra-abdominal haemorrhage [Fatal]
  - Intra-abdominal haemorrhage [Recovered/Resolved]
  - Incorrect product administration duration [Not Recovered/Not Resolved]
  - Hepatitis C [Unknown]

NARRATIVE: CASE EVENT DATE: 20190902
